FAERS Safety Report 23135210 (Version 1)
Quarter: 2023Q4

REPORT INFORMATION
  Report Type: Spontaneous
  Country: US (occurrence: US)
  Receive Date: 20231101
  Receipt Date: 20231101
  Transmission Date: 20240109
  Serious: Yes (Other)
  Sender: FDA-Public Use
  Company Number: US-SUN PHARMACEUTICAL INDUSTRIES LTD-2023R1-415783

PATIENT
  Age: 74 Year
  Sex: Male

DRUGS (2)
  1. QUETIAPINE [Suspect]
     Active Substance: QUETIAPINE
     Indication: Rapid eye movement sleep behaviour disorder
     Dosage: 50 MILLIGRAM
     Route: 065
  2. QUETIAPINE [Suspect]
     Active Substance: QUETIAPINE
     Indication: Nightmare

REACTIONS (4)
  - Paradoxical drug reaction [Recovered/Resolved]
  - Sedation complication [Recovered/Resolved]
  - Screaming [Unknown]
  - Loss of personal independence in daily activities [Unknown]
